FAERS Safety Report 13670766 (Version 1)
Quarter: 2017Q2

REPORT INFORMATION
  Report Type: Spontaneous
  Country: US (occurrence: US)
  Receive Date: 20170620
  Receipt Date: 20170620
  Transmission Date: 20170830
  Serious: No
  Sender: FDA-Public Use
  Company Number: US-ROCHE-1176371

PATIENT
  Sex: Male

DRUGS (1)
  1. XELODA [Suspect]
     Active Substance: CAPECITABINE
     Indication: GASTRIC CANCER
     Dosage: 2500 MG IN MORNING AND 2000 MG IN EVENING
     Route: 065
     Dates: start: 20121212

REACTIONS (5)
  - Constipation [Unknown]
  - Hypoaesthesia [Not Recovered/Not Resolved]
  - Stomatitis [Unknown]
  - Faecal vomiting [Unknown]
  - Paraesthesia [Not Recovered/Not Resolved]
